FAERS Safety Report 9016288 (Version 1)
Quarter: 2013Q1

REPORT INFORMATION
  Report Type: Spontaneous
  Country: US (occurrence: US)
  Receive Date: 20130116
  Receipt Date: 20130116
  Transmission Date: 20140127
  Serious: Yes (Hospitalization)
  Sender: FDA-Public Use
  Company Number: US-B.I. PHARMACEUTICALS,INC./RIDGEFIELD-2013-BI-00773BP

PATIENT
  Age: 83 Year
  Sex: Female

DRUGS (3)
  1. PRADAXA [Suspect]
     Indication: CEREBROVASCULAR ACCIDENT PROPHYLAXIS
     Dosage: 300 MG
     Route: 048
     Dates: start: 201207, end: 201211
  2. PRADAXA [Suspect]
     Indication: ATRIAL FIBRILLATION
  3. MEDICATION NOT FURTHER SPECIFIED [Concomitant]

REACTIONS (1)
  - Cerebral haemorrhage [Not Recovered/Not Resolved]
